FAERS Safety Report 7564316-2 (Version None)
Quarter: 2011Q2

REPORT INFORMATION
  Report Type: 
  Country: None (occurrence: None)
  Receive Date: 20110622
  Receipt Date: 20110427
  Transmission Date: 20111010
  Serious: No
  Sender: FDA-Public Use
  Company Number: US-ALLERGAN-1105865US

PATIENT
  Age: 80 Year
  Sex: Male

DRUGS (2)
  1. SYSTANE [Concomitant]
     Indication: DRY EYE
  2. LUMIGAN [Suspect]
     Indication: INTRAOCULAR PRESSURE INCREASED
     Dosage: 1 GTT, QHS
     Route: 047
     Dates: start: 20110101, end: 20110401

REACTIONS (1)
  - DYSPNOEA EXERTIONAL [None]
